FAERS Safety Report 5901746-6 (Version None)
Quarter: 2008Q3

REPORT INFORMATION
  Report Type: 
  Country: None (occurrence: None)
  Receive Date: 20080929
  Receipt Date: 20080918
  Transmission Date: 20090109
  Serious: Yes (Hospitalization)
  Sender: FDA-Public Use
  Company Number: JP-BRISTOL-MYERS SQUIBB COMPANY-14346845

PATIENT
  Age: 21 Year
  Sex: Male

DRUGS (3)
  1. ABILIFY [Suspect]
     Indication: SCHIZOPHRENIA
     Dosage: 12MG QD,01JUL-11JUL08(11DAYS);18MG12JUL-24JUL08(13D);12MG25JUL-08AUG08(15D);6MG 09AUG-22AUG08(14D).
     Route: 048
     Dates: start: 20080701, end: 20080822
  2. RISPERDAL [Concomitant]
     Indication: SCHIZOPHRENIA
     Route: 048
     Dates: start: 20080630, end: 20080808
  3. HALOPERIDOL [Concomitant]
     Dates: start: 20080630, end: 20080701

REACTIONS (4)
  - AKATHISIA [None]
  - EXTRAPYRAMIDAL DISORDER [None]
  - INSOMNIA [None]
  - MANIA [None]
